FAERS Safety Report 7804908-6 (Version None)
Quarter: 2011Q4

REPORT INFORMATION
  Report Type: 
  Country: None (occurrence: None)
  Receive Date: 20111010
  Receipt Date: 20111005
  Transmission Date: 20120403
  Serious: Yes (Death, Hospitalization)
  Sender: FDA-Public Use
  Company Number: ZA-BRISTOL-MYERS SQUIBB COMPANY-15166655

PATIENT
  Age: 51 Year
  Sex: Male
  Weight: 65 kg

DRUGS (6)
  1. WARFARIN SODIUM [Concomitant]
     Indication: PROPHYLAXIS
     Route: 048
     Dates: start: 20100408
  2. IMODIUM [Concomitant]
     Indication: PROPHYLAXIS
     Route: 048
     Dates: start: 20100331
  3. MORPHINE [Concomitant]
     Indication: PROPHYLAXIS
     Dosage: MORPHINE SYRUP
     Route: 048
     Dates: start: 20100408
  4. CETUXIMAB [Suspect]
     Indication: NON-SMALL CELL LUNG CANCER
     Dosage: STRENGTH: 5 MG/ML REC INF: 10JUN10. TOTAL:24
     Route: 042
     Dates: start: 20091124, end: 20100610
  5. SCOPOLAMINE [Concomitant]
     Indication: PROPHYLAXIS
     Route: 048
     Dates: start: 20100331
  6. MORPHINE SULFATE [Concomitant]
     Indication: PROPHYLAXIS
     Route: 048
     Dates: start: 20100408

REACTIONS (2)
  - DEEP VEIN THROMBOSIS [None]
  - NEOPLASM MALIGNANT [None]
